FAERS Safety Report 6122463-6 (Version None)
Quarter: 2009Q1

REPORT INFORMATION
  Report Type: 
  Country: None (occurrence: None)
  Receive Date: 20090318
  Receipt Date: 20081201
  Transmission Date: 20090719
  Serious: No
  Sender: FDA-Public Use
  Company Number: US-ASTRAZENECA-2008UW26753

PATIENT
  Sex: Male

DRUGS (1)
  1. SYMBICORT [Suspect]
     Indication: CHRONIC OBSTRUCTIVE PULMONARY DISEASE
     Dosage: 4.5 MCG 60 INHALATIONS, 2 PUFFS IN AM AND 2 PUFFS IN AFTERNOON
     Route: 055
     Dates: start: 20081001

REACTIONS (2)
  - OROPHARYNGEAL PAIN [None]
  - OSTEOPOROSIS [None]
